FAERS Safety Report 7662525-5 (Version None)
Quarter: 2011Q3

REPORT INFORMATION
  Report Type: 
  Country: None (occurrence: None)
  Receive Date: 20110805
  Receipt Date: 20110719
  Transmission Date: 20111222
  Serious: Yes (Hospitalization, Other)
  Sender: FDA-Public Use
  Company Number: PHHY2009JP33427

PATIENT
  Sex: Female
  Weight: 61 kg

DRUGS (71)
  1. IMATINIB MESYLATE [Suspect]
     Dosage: 200 MG, DAILY
     Route: 048
     Dates: start: 20081107, end: 20081118
  2. ONCOVIN [Concomitant]
     Dosage: 2 MG, UNK
     Route: 041
  3. SLOW-K [Concomitant]
     Route: 048
  4. LOXOPROFEN [Concomitant]
     Dosage: 60 MG, UNK
     Route: 048
  5. KYTRIL [Concomitant]
     Dosage: 6 MG, UNK
     Route: 042
     Dates: start: 20090302, end: 20090304
  6. METHYLPREDNISOLONE SODIUM SUCCINATE [Concomitant]
     Dosage: 2.5 DF, UNK
     Route: 042
     Dates: start: 20081019
  7. CYTARABINE [Concomitant]
     Dosage: UNK UKN, UNK
     Route: 042
     Dates: start: 20081019
  8. MUCOSTA [Concomitant]
     Indication: PROPHYLAXIS
     Dosage: 300 MG, UNK
     Route: 048
  9. ZOLPIDEM [Concomitant]
     Dosage: 5 MG, UNK
     Route: 048
  10. IMATINIB MESYLATE [Suspect]
     Dosage: 600 MG, DAILY
     Route: 048
     Dates: start: 20090323, end: 20091014
  11. TRIAZOLAM [Concomitant]
     Dosage: 0.25 MG, UNK
     Route: 048
     Dates: start: 20081006, end: 20081023
  12. BROACT [Concomitant]
     Dosage: UNK
     Route: 042
     Dates: start: 20090311, end: 20090316
  13. POTASSIUM CHLORIDE [Concomitant]
     Dosage: UNK
     Route: 042
     Dates: end: 20090322
  14. KYTRIL [Concomitant]
     Dosage: 6 MG, UNK
     Route: 042
     Dates: start: 20090108
  15. CYTARABINE [Concomitant]
     Dosage: UNK
     Route: 042
     Dates: end: 20081105
  16. UNASYN [Concomitant]
     Dosage: 1.5 DF, UNK
     Route: 042
     Dates: start: 20090319, end: 20090320
  17. SPRYCEL [Concomitant]
     Indication: ACUTE LYMPHOCYTIC LEUKAEMIA
     Dosage: 100 MG, UNK
     Route: 048
     Dates: start: 20091015
  18. ISONIAZID [Concomitant]
     Indication: PROPHYLAXIS
     Dosage: 300 MG, UNK
     Route: 048
  19. IMATINIB MESYLATE [Suspect]
     Dosage: 200 MG, DAILY
     Route: 048
     Dates: start: 20081205, end: 20090104
  20. GRAN [Suspect]
     Dosage: UNK UKN, UNK
     Route: 058
  21. PREDNISOLONE [Concomitant]
     Dosage: 95 MG, UNK
     Route: 048
     Dates: start: 20080911
  22. ONCOVIN [Concomitant]
     Dosage: 2 MG, UNK
     Route: 041
     Dates: end: 20081002
  23. SOLDEM 1 [Concomitant]
     Dosage: UNK UKN, UNK
     Route: 042
     Dates: start: 20080905
  24. KYTRIL [Concomitant]
     Dosage: 3 MG, UNK
     Route: 042
     Dates: start: 20081019
  25. CYTARABINE [Concomitant]
     Dosage: UNK
     Route: 042
     Dates: start: 20090106, end: 20090108
  26. TOWARAT [Concomitant]
     Dosage: 20 MG, UNK
     Route: 048
  27. VALTREX [Concomitant]
     Indication: PROPHYLAXIS
     Dosage: 500 MG, UNK
     Route: 048
     Dates: start: 20090301
  28. IMATINIB MESYLATE [Suspect]
     Indication: ACUTE LYMPHOCYTIC LEUKAEMIA
     Dosage: 600 MG, DAILY
     Route: 048
     Dates: start: 20080905, end: 20080921
  29. PIPERACILLIN AND TAZOBACTAM [Suspect]
     Dosage: UNK UKN, UNK
     Route: 041
     Dates: start: 20090415
  30. SENNOSIDE [Concomitant]
     Dosage: 12 MG, UNK
     Route: 048
     Dates: start: 20080916, end: 20081010
  31. LANSOPRAZOLE [Concomitant]
     Dosage: 0.25 MG, UNK
     Route: 048
     Dates: start: 20081017
  32. HUMULIN R [Concomitant]
     Dosage: 1 ML, UNK
     Route: 042
  33. BROACT [Concomitant]
     Dosage: 2 G, UNK
     Route: 042
  34. SOLU-CORTEF [Concomitant]
     Dosage: 200 MG, UNK
     Route: 042
     Dates: start: 20081026
  35. BROTIZOLAM [Concomitant]
     Dosage: 0.25 MG, UNK
     Route: 048
  36. PREDNISOLONE [Concomitant]
     Dosage: 25 MG, UNK
  37. DAIPHEN [Concomitant]
     Dosage: 1 DF, UNK
     Route: 048
     Dates: start: 20080905, end: 20081016
  38. ZOPLICONE [Concomitant]
     Route: 048
  39. MECOBALAMIN [Concomitant]
     Dosage: 1500 MG, UNK
     Route: 048
  40. PANABATE [Concomitant]
     Dosage: 1500 MG, UNK
     Route: 042
  41. POTASSIUM CHLORIDE [Concomitant]
     Dosage: UNK UKN, UNK
     Route: 042
     Dates: start: 20080916
  42. POTASSIUM CHLORIDE [Concomitant]
     Dosage: 20 MEQ, UNK
     Route: 042
     Dates: start: 20080919, end: 20091012
  43. SOLU-CORTEF [Concomitant]
     Dosage: 200 MG, UNK
     Route: 042
     Dates: end: 20090112
  44. DIAMOX SRC [Concomitant]
     Dosage: 250 MG, UNK
     Route: 042
     Dates: start: 20090108, end: 20090109
  45. IMATINIB MESYLATE [Suspect]
     Dosage: 200 MG, DAILY
     Route: 048
     Dates: start: 20081022, end: 20081030
  46. FLUCONAZOLE [Suspect]
     Dosage: 400 MG, DAILY
     Dates: start: 20090530, end: 20090729
  47. AMBISOME [Suspect]
     Dosage: 150 MG, UNK
     Route: 041
     Dates: start: 20090730
  48. EXJADE [Concomitant]
     Dosage: 875 MG, UNK
     Route: 048
     Dates: start: 20090728
  49. SLOW-K [Concomitant]
     Route: 048
     Dates: start: 20081116
  50. GLUCOSE [Concomitant]
     Dosage: 1 DF, UNK
     Route: 042
  51. SOLDEM 1 [Concomitant]
     Dosage: UNK
     Route: 042
     Dates: end: 20081027
  52. PRIMPERAN TAB [Concomitant]
     Dosage: UNK UKN, UNK
     Route: 042
     Dates: start: 20080913, end: 20081011
  53. DEXAMETHASONE SODIUM PHOSPHATE [Concomitant]
     Dosage: 4 MG, UNK
     Route: 042
     Dates: end: 20081105
  54. ENALAPRIL MALEATE [Concomitant]
     Dosage: 5 MG, UNK
     Route: 048
  55. FLUCONAZOLE [Suspect]
     Dosage: 400 MG, DAILY
     Route: 042
     Dates: start: 20090513, end: 20090517
  56. FLUCONAZOLE [Suspect]
     Dosage: 400 MG, DAILY
     Route: 041
     Dates: start: 20090425, end: 20090512
  57. PREDNISOLONE [Concomitant]
     Dosage: 10 MG, UNK
  58. ONCOVIN [Concomitant]
     Dosage: 2 MG, UNK
     Route: 041
     Dates: start: 20080911
  59. ONCOVIN [Concomitant]
     Dosage: 2 MG, UNK
     Route: 041
  60. TAIPERACILIN [Concomitant]
     Dosage: 4 G, UNK
     Route: 042
     Dates: start: 20080905, end: 20080917
  61. NOVORAPID [Concomitant]
     Dosage: 300 DF, UNK
     Route: 058
     Dates: start: 20080911, end: 20080911
  62. DEXAMETHASONE SODIUM PHOSPHATE [Concomitant]
     Dosage: 4 MG, UNK
     Route: 042
     Dates: start: 20081019
  63. NEO-MINOPHAGEN C [Concomitant]
     Dosage: 40 MG, UNK
     Route: 042
     Dates: start: 20090730, end: 20090810
  64. IMATINIB MESYLATE [Suspect]
     Dosage: 300 MG, DAILY
     Route: 048
     Dates: start: 20081031, end: 20081106
  65. IMATINIB MESYLATE [Suspect]
     Dosage: 200 MG, DAILY
     Route: 048
     Dates: start: 20090130, end: 20090301
  66. VFEND [Suspect]
     Dosage: UNK UKN, UNK
     Route: 048
     Dates: start: 20090415, end: 20090424
  67. PREDNISOLONE [Concomitant]
     Dosage: 50 MG, UNK
     Dates: start: 20080911
  68. PREDNISOLONE [Concomitant]
     Dosage: 5 MG, UNK
     Route: 048
     Dates: end: 20081009
  69. SODIUM BICARBONATE [Concomitant]
     Dosage: UNK UKN, UNK
     Route: 042
     Dates: start: 20080905, end: 20080916
  70. METHYLPREDNISOLONE SODIUM SUCCINATE [Concomitant]
     Dosage: 2.5 DF, UNK
     Route: 042
     Dates: end: 20090108
  71. FUROSEMIDE [Concomitant]
     Indication: PROPHYLAXIS
     Dosage: 20 MG, UNK
     Route: 048

REACTIONS (16)
  - MALAISE [None]
  - PANCYTOPENIA [None]
  - PLEURAL EFFUSION [None]
  - HYPOCOAGULABLE STATE [None]
  - LIVER DISORDER [None]
  - SERUM FERRITIN INCREASED [None]
  - OEDEMA [None]
  - HERPES ZOSTER [None]
  - FOLLICULITIS [None]
  - MALLORY-WEISS SYNDROME [None]
  - VOMITING [None]
  - HYPOKALAEMIA [None]
  - RENAL DISORDER [None]
  - PYREXIA [None]
  - DEMENTIA [None]
  - CRYPTOCOCCOSIS [None]
